FAERS Safety Report 20356308 (Version 1)
Quarter: 2022Q1

REPORT INFORMATION
  Report Type: Spontaneous
  Country: US (occurrence: US)
  Receive Date: 20220120
  Receipt Date: 20220120
  Transmission Date: 20220424
  Serious: No
  Sender: FDA-Public Use
  Company Number: US-PFIZER INC-2021864343

PATIENT
  Age: 54 Year
  Sex: Female
  Weight: 71 kg

DRUGS (4)
  1. DAYPRO [Suspect]
     Active Substance: OXAPROZIN
     Indication: Rheumatoid arthritis
     Dosage: 600MG ONCE A DAY BY MOUTH
     Route: 048
  2. DAYPRO [Suspect]
     Active Substance: OXAPROZIN
     Indication: Fibromyalgia
  3. DAYPRO [Suspect]
     Active Substance: OXAPROZIN
     Indication: Immune system disorder
  4. HUMAN IMMUNOGLOBULIN G [Concomitant]
     Active Substance: HUMAN IMMUNOGLOBULIN G
     Indication: Immune system disorder
     Dosage: DOSE UNKNOWN, IV ONCE A MONTH
     Route: 042

REACTIONS (1)
  - Drug ineffective [Unknown]
